FAERS Safety Report 9503975 (Version 1)
Quarter: 2013Q1

REPORT INFORMATION
  Report Type: Spontaneous
  Country: US (occurrence: None)
  Receive Date: 20130225
  Receipt Date: 20130225
  Transmission Date: 20140127
  Serious: No
  Sender: FDA-Public Use
  Company Number: 366881

PATIENT
  Age: 61 Year
  Sex: Female

DRUGS (6)
  1. VICTOZA [Suspect]
     Indication: TYPE 2 DIABETES MELLITUS
     Route: 058
     Dates: start: 20121023
  2. AMBIEN (ZOLPIDEM TARTRATE) [Concomitant]
  3. METFORMIN (METFORMIN) [Concomitant]
  4. PREMARIN LOW DOSE (ESTROGENS CONJUGATED) [Concomitant]
  5. RECLAST (ZOLEDRONIC ACID) [Concomitant]
  6. ZOCOR (SIMVASTATIN) [Concomitant]

REACTIONS (2)
  - Nausea [None]
  - Vomiting [None]
